FAERS Safety Report 14738549 (Version 2)
Quarter: 2018Q2

REPORT INFORMATION
  Report Type: Report from Study
  Country: US (occurrence: US)
  Receive Date: 20180409
  Receipt Date: 20180507
  Transmission Date: 20180711
  Serious: Yes (Death, Hospitalization, Other)
  Sender: FDA-Public Use
  Company Number: US-ACTELION-A-US2017-156489

PATIENT
  Age: 65 Year
  Sex: Female
  Weight: 71.66 kg

DRUGS (5)
  1. ADCIRCA [Concomitant]
     Active Substance: TADALAFIL
  2. BABY ASPIRIN [Concomitant]
     Active Substance: ASPIRIN
     Dosage: 81 MG, QD
     Dates: end: 20180330
  3. CIALIS [Concomitant]
     Active Substance: TADALAFIL
     Dosage: UNK
     Dates: end: 20180330
  4. OPSUMIT [Suspect]
     Active Substance: MACITENTAN
     Indication: PULMONARY ARTERIAL HYPERTENSION
     Dosage: 10 MG, QD
     Route: 048
     Dates: end: 20180330
  5. IRON [Concomitant]
     Active Substance: IRON
     Dosage: UNK
     Dates: end: 20180330

REACTIONS (23)
  - Infected cyst [Recovering/Resolving]
  - Pain in jaw [Unknown]
  - Respiratory arrest [Recovered/Resolved]
  - Communication disorder [Recovering/Resolving]
  - Renal failure [Fatal]
  - Cardiac arrest [Recovered/Resolved]
  - Cardiac pacemaker insertion [Unknown]
  - Speech disorder [Recovering/Resolving]
  - Blood creatinine increased [Fatal]
  - Epistaxis [Unknown]
  - Disorientation [Recovering/Resolving]
  - Pallor [Unknown]
  - Blood urea increased [Fatal]
  - Gastrooesophageal reflux disease [Unknown]
  - Atrial fibrillation [Unknown]
  - Vitamin D decreased [Unknown]
  - Blood phosphorus increased [Fatal]
  - Fluid retention [Unknown]
  - Mental impairment [Recovering/Resolving]
  - Peritoneal dialysis [Unknown]
  - Gait inability [Unknown]
  - Dialysis [Unknown]
  - Hypotension [Unknown]

NARRATIVE: CASE EVENT DATE: 201706
